FAERS Safety Report 4323523-2 (Version None)
Quarter: 2004Q1

REPORT INFORMATION
  Report Type: 
  Country: None (occurrence: None)
  Receive Date: 20040324
  Receipt Date: 20040324
  Transmission Date: 20041129
  Serious: No
  Sender: FDA-Public Use
  Company Number: None

PATIENT
  Age: 34 Year
  Sex: Female

DRUGS (3)
  1. CLOMID [Suspect]
     Indication: INFERTILITY
     Dosage: 100 MG QD ORAL
     Route: 048
     Dates: start: 20030201, end: 20030401
  2. CLOMID [Suspect]
     Indication: INFERTILITY
     Dosage: 150 MG QD ORAL
     Route: 048
     Dates: start: 20030715, end: 20031130
  3. PRENATAL VITAMINS [Concomitant]

REACTIONS (7)
  - C-REACTIVE PROTEIN INCREASED [None]
  - CHOLELITHIASIS [None]
  - GASTRITIS [None]
  - GASTROENTERITIS HELICOBACTER [None]
  - INTESTINAL POLYP [None]
  - PANCREATITIS [None]
  - UTERINE POLYP [None]
